FAERS Safety Report 16389446 (Version 1)
Quarter: 2019Q2

REPORT INFORMATION
  Report Type: Spontaneous
  Country: US (occurrence: US)
  Receive Date: 20190604
  Receipt Date: 20190604
  Transmission Date: 20190711
  Serious: No
  Sender: FDA-Public Use
  Company Number: US-VIFOR (INTERNATIONAL) INC.-VIT-2019-04812

PATIENT
  Age: 82 Year
  Sex: Female
  Weight: 41.6 kg

DRUGS (1)
  1. MIRCERA [Suspect]
     Active Substance: METHOXY POLYETHYLENE GLYCOL-EPOETIN BETA
     Indication: PRODUCT USED FOR UNKNOWN INDICATION
     Dates: start: 20160309, end: 20160309

REACTIONS (2)
  - Chest pain [Recovered/Resolved]
  - Drug hypersensitivity [Recovered/Resolved]

NARRATIVE: CASE EVENT DATE: 201603
